FAERS Safety Report 15474678 (Version 2)
Quarter: 2019Q1

REPORT INFORMATION
  Report Type: Other
  Country: CA (occurrence: CA)
  Receive Date: 20181008
  Receipt Date: 20190122
  Transmission Date: 20190417
  Serious: Yes (Other)
  Sender: FDA-Public Use
  Company Number: CA-PFIZER INC-2018399053

PATIENT
  Age: 35 Year
  Sex: Female

DRUGS (18)
  1. FENTANYL. [Concomitant]
     Active Substance: FENTANYL
     Dosage: 400 UG, UNK
     Route: 042
  2. MIDAZOLAM [Concomitant]
     Active Substance: MIDAZOLAM HYDROCHLORIDE
     Dosage: 3 MG, UNK
  3. PROPOFOL. [Concomitant]
     Active Substance: PROPOFOL
     Indication: GENERAL ANAESTHESIA
     Dosage: 200 MG, UNK
     Route: 042
  4. HYDROMORPHONE HYDROCHLORIDE. [Interacting]
     Active Substance: HYDROMORPHONE HYDROCHLORIDE
     Dosage: 1.5 MG, UNK
     Route: 042
  5. BUPIVACAINE HYDROCHLORIDE/EPINEPHRINE [Concomitant]
     Indication: GENERAL ANAESTHESIA
     Dosage: 30 ML, UNK
  6. FENTANYL. [Concomitant]
     Active Substance: FENTANYL
     Indication: PAIN MANAGEMENT
     Dosage: 100 UG, UNK
     Route: 042
  7. KETOROLAC [Concomitant]
     Active Substance: KETOROLAC\KETOROLAC TROMETHAMINE
     Dosage: 30 MG, UNK
     Route: 042
  8. OXYCODONE [Concomitant]
     Active Substance: OXYCODONE
     Indication: PAIN MANAGEMENT
     Dosage: 10 MG, UNK
     Route: 048
  9. ACETAMINOPHEN. [Concomitant]
     Active Substance: ACETAMINOPHEN
     Indication: PAIN MANAGEMENT
     Dosage: 2 TABLETS OF 325 MG
  10. HERBALS NOS;MINERALS NOS;VITAMINS NOS [Concomitant]
     Indication: ANXIETY
     Dosage: 3.5-7G, 1X/DAY
  11. KETAMINE [Concomitant]
     Active Substance: KETAMINE
     Indication: ANALGESIC THERAPY
     Dosage: 40 MG, UNK
     Route: 042
  12. SEVOFLURANE. [Concomitant]
     Active Substance: SEVOFLURANE
     Indication: GENERAL ANAESTHESIA
     Dosage: 0.5 %, UNK
  13. HYDROMORPHONE HYDROCHLORIDE. [Suspect]
     Active Substance: HYDROMORPHONE HYDROCHLORIDE
     Indication: ANALGESIC THERAPY
     Dosage: 2 MG, UNK
     Route: 048
  14. HYDROMORPHONE HYDROCHLORIDE. [Interacting]
     Active Substance: HYDROMORPHONE HYDROCHLORIDE
     Dosage: 1.2 MG, UNK
     Route: 042
  15. SEVOFLURANE. [Concomitant]
     Active Substance: SEVOFLURANE
     Dosage: 2.4 %, UNK
  16. LIDOCAINE AND EPINEPHRINE [Concomitant]
     Active Substance: EPINEPHRINE\LIDOCAINE HYDROCHLORIDE
     Indication: GENERAL ANAESTHESIA
     Dosage: 30 ML, UNK
     Route: 042
  17. MIDAZOLAM [Concomitant]
     Active Substance: MIDAZOLAM HYDROCHLORIDE
     Indication: GENERAL ANAESTHESIA
     Dosage: 3 MG, UNK
  18. AMFETAMINE [Concomitant]
     Active Substance: AMPHETAMINE
     Indication: ATTENTION DEFICIT/HYPERACTIVITY DISORDER
     Dosage: 15 MG, 1X/DAY

REACTIONS (3)
  - Drug interaction [Recovered/Resolved]
  - Delirium [Recovered/Resolved]
  - Drug resistance [Recovered/Resolved]
